FAERS Safety Report 25553179 (Version 1)
Quarter: 2025Q3

REPORT INFORMATION
  Report Type: 
  Country: AU (occurrence: AU)
  Receive Date: 20250715
  Receipt Date: 20250715
  Transmission Date: 20251021
  Serious: Yes (Other)
  Sender: CELLTRION
  Company Number: AU-CELLTRION INC.-2025AU022722

PATIENT

DRUGS (2)
  1. ADALIMUMAB [Suspect]
     Active Substance: ADALIMUMAB
     Indication: Product used for unknown indication
  2. METHOTREXATE [Concomitant]
     Active Substance: METHOTREXATE

REACTIONS (9)
  - Secondary amyloidosis [Unknown]
  - Intestinal perforation [Unknown]
  - Reflux gastritis [Unknown]
  - Diverticulum intestinal [Unknown]
  - Fatigue [Unknown]
  - Hiatus hernia [Unknown]
  - Large intestine polyp [Unknown]
  - Neutrophilia [Unknown]
  - Quality of life decreased [Unknown]
